FAERS Safety Report 21946182 (Version 1)
Quarter: 2023Q1

REPORT INFORMATION
  Report Type: Report from Study
  Country: IT (occurrence: IT)
  Receive Date: 20230202
  Receipt Date: 20230202
  Transmission Date: 20230417
  Serious: Yes (Hospitalization)
  Sender: FDA-Public Use
  Company Number: None

PATIENT
  Age: 83 Year
  Sex: Male

DRUGS (6)
  1. DOXAZOSIN MESYLATE [Suspect]
     Active Substance: DOXAZOSIN MESYLATE
     Indication: Hypertension
     Dosage: DOSAGE: 4 UNIT OF MEASURE: MILLIGRAMS, FREQUENCY OF ADMINISTRATION: TOTAL
     Route: 048
     Dates: start: 20220324, end: 20220324
  2. LASIX [Suspect]
     Active Substance: FUROSEMIDE
     Indication: Hypertension
     Dosage: DOSAGE: 25 UNIT OF MEASURE: MILLIGRAMS
     Route: 048
     Dates: start: 20220320, end: 20220324
  3. GLYBURIDE\METFORMIN HYDROCHLORIDE [Concomitant]
     Active Substance: GLYBURIDE\METFORMIN HYDROCHLORIDE
     Indication: Product used for unknown indication
     Dosage: DOSAGE: 3 UNIT OF MEASURE: DOSING UNIT
  4. TAMSULOSIN [Concomitant]
     Active Substance: TAMSULOSIN
     Indication: Product used for unknown indication
     Dosage: DOSAGE: 0.4 UNIT OF MEASURE: MILLIGRAMS
  5. ASPIRIN DL-LYSINE [Concomitant]
     Active Substance: ASPIRIN DL-LYSINE
     Indication: Product used for unknown indication
  6. PRAMIPEXOLE [Concomitant]
     Active Substance: PRAMIPEXOLE
     Indication: Product used for unknown indication
     Dosage: DOSAGE: 0.18 UNIT OF MEASURE: MILLIGRAMS

REACTIONS (1)
  - Syncope [Recovering/Resolving]

NARRATIVE: CASE EVENT DATE: 20220324
